FAERS Safety Report 8973883 (Version 1)
Quarter: 2012Q4

REPORT INFORMATION
  Report Type: 
  Country: US (occurrence: US)
  Receive Date: 20121218
  Receipt Date: 20121218
  Transmission Date: 20130627
  Serious: No
  Sender: FDA-Public Use
  Company Number: US-B.I. PHARMACEUTICALS,INC./RIDGEFIELD-2012-BP-25733BP

PATIENT
  Sex: Female

DRUGS (3)
  1. IPRATROPIUM BROMIDE [Suspect]
     Indication: ASTHMA
     Dosage: 204 mcg
     Route: 055
     Dates: start: 20120906
  2. ADVAIR [Concomitant]
     Indication: ASTHMA
     Route: 055
  3. THEOPHYLLINE ER [Concomitant]
     Dosage: 400 mg

REACTIONS (2)
  - Dyspnoea [Not Recovered/Not Resolved]
  - Malaise [Not Recovered/Not Resolved]
